FAERS Safety Report 4275786-X (Version None)
Quarter: 2004Q1

REPORT INFORMATION
  Report Type: 
  Country: None (occurrence: None)
  Receive Date: 20040121
  Receipt Date: 20030805
  Transmission Date: 20041129
  Serious: Yes (Other)
  Sender: FDA-Public Use
  Company Number: WAES 0308USA02543

PATIENT
  Age: 59 Year
  Sex: Female
  Weight: 57 kg

DRUGS (4)
  1. FOSAMAX [Suspect]
     Indication: OSTEOPENIA
     Route: 048
     Dates: start: 20020201, end: 20030101
  2. FOSAMAX [Suspect]
     Route: 048
     Dates: start: 20020121, end: 20020201
  3. CALCIUM CITRATE [Concomitant]
  4. TOPROL-XL [Concomitant]

REACTIONS (5)
  - HYPERTENSION [None]
  - MEDICATION ERROR [None]
  - NEPHROCALCINOSIS [None]
  - RENAL FAILURE [None]
  - TUBULOINTERSTITIAL NEPHRITIS [None]
